FAERS Safety Report 25280884 (Version 2)
Quarter: 2025Q2

REPORT INFORMATION
  Report Type: Spontaneous
  Country: US (occurrence: US)
  Receive Date: 20250508
  Receipt Date: 20250520
  Transmission Date: 20250716
  Serious: Yes (Hospitalization)
  Sender: TEVA
  Company Number: US-TEVA-VS-3327385

PATIENT
  Age: 71 Year
  Sex: Male

DRUGS (5)
  1. VALGANCICLOVIR [Suspect]
     Active Substance: VALGANCICLOVIR
     Indication: Cytomegalovirus infection reactivation
     Route: 065
  2. VALGANCICLOVIR [Suspect]
     Active Substance: VALGANCICLOVIR
  3. DASATINIB [Suspect]
     Active Substance: DASATINIB
     Indication: Acute lymphocytic leukaemia
     Route: 065
  4. METRONIDAZOLE [Concomitant]
     Active Substance: METRONIDAZOLE
     Indication: Evidence based treatment
     Route: 065
  5. CEFTRIAXONE [Concomitant]
     Active Substance: CEFTRIAXONE
     Indication: Evidence based treatment
     Route: 065

REACTIONS (5)
  - Cytomegalovirus infection reactivation [Recovering/Resolving]
  - Large intestine perforation [Recovering/Resolving]
  - Drug ineffective [Unknown]
  - Cytomegalovirus colitis [Recovering/Resolving]
  - Peritonitis [Recovering/Resolving]
